FAERS Safety Report 10100931 (Version 1)
Quarter: 2014Q2

REPORT INFORMATION
  Report Type: Spontaneous
  Country: US (occurrence: US)
  Receive Date: 20140424
  Receipt Date: 20140424
  Transmission Date: 20141212
  Serious: No
  Sender: FDA-Public Use
  Company Number: US-009507513-1404USA010813

PATIENT
  Age: 26 Year
  Sex: Female

DRUGS (1)
  1. NEXPLANON [Suspect]
     Indication: CONTRACEPTION
     Dosage: EVERY 3 YEARS, 1 ROD
     Route: 059
     Dates: start: 20121130

REACTIONS (5)
  - Suicidal ideation [Unknown]
  - Depression [Unknown]
  - Muscle spasms [Unknown]
  - Hypoaesthesia [Unknown]
  - Weight increased [Unknown]
